FAERS Safety Report 11168431 (Version 1)
Quarter: 2015Q2

REPORT INFORMATION
  Report Type: Spontaneous
  Country: US (occurrence: None)
  Receive Date: 20150604
  Receipt Date: 20150604
  Transmission Date: 20150821
  Serious: Yes (Hospitalization, Disabling, Other)
  Sender: FDA-Public Use
  Company Number: None

PATIENT
  Age: 1 Year
  Sex: Male

DRUGS (2)
  1. MIRALAX [Suspect]
     Active Substance: POLYETHYLENE GLYCOL 3350
     Indication: CONSTIPATION
     Dosage: 1-2 TEASPOON
     Route: 048
     Dates: start: 20130601, end: 20150528
  2. OXCARBAZEPINE. [Concomitant]
     Active Substance: OXCARBAZEPINE

REACTIONS (7)
  - Panic attack [None]
  - Crying [None]
  - Anxiety [None]
  - Seizure [None]
  - Social avoidant behaviour [None]
  - Obsessive-compulsive disorder [None]
  - Anger [None]
